FAERS Safety Report 25873331 (Version 1)
Quarter: 2025Q4

REPORT INFORMATION
  Report Type: Spontaneous
  Country: GB (occurrence: GB)
  Receive Date: 20251002
  Receipt Date: 20251002
  Transmission Date: 20260118
  Serious: Yes (Death, Other)
  Sender: RANBAXY
  Company Number: GB-SUN PHARMACEUTICAL INDUSTRIES LTD-2025R1-529085

PATIENT
  Age: 8 Decade

DRUGS (1)
  1. CAPECITABINE [Suspect]
     Active Substance: CAPECITABINE
     Indication: Chemotherapy
     Dosage: UNK 1000MG/M2
     Route: 065
     Dates: start: 20221018

REACTIONS (3)
  - Colitis [Fatal]
  - Dihydropyrimidine dehydrogenase deficiency [Fatal]
  - Intestinal ischaemia [Fatal]
